APPROVED DRUG PRODUCT: GASTROMARK
Active Ingredient: FERUMOXSIL
Strength: EQ 0.175MG IRON/ML
Dosage Form/Route: SUSPENSION;ORAL
Application: N020410 | Product #001
Applicant: AMAG PHARMACEUTICALS INC
Approved: Dec 6, 1996 | RLD: No | RS: No | Type: DISCN